FAERS Safety Report 6989439-8 (Version None)
Quarter: 2010Q3

REPORT INFORMATION
  Report Type: 
  Country: None (occurrence: None)
  Receive Date: 20100916
  Receipt Date: 20091216
  Transmission Date: 20110219
  Serious: Yes (Hospitalization, Other)
  Sender: FDA-Public Use
  Company Number: US-PFIZER INC-2009311724

PATIENT
  Age: 35 Year
  Sex: Female
  Weight: 150 kg

DRUGS (4)
  1. LYRICA [Suspect]
     Indication: MULTIPLE SCLEROSIS
     Dosage: UNK
  2. LYRICA [Suspect]
     Indication: CONVULSION
     Dosage: 75 MG, 2X/DAY
     Dates: start: 20090726, end: 20090814
  3. LAMICTAL [Concomitant]
     Dosage: 50 MG, 2X/DAY
  4. CRANBERRY [Concomitant]
     Dosage: UNK

REACTIONS (4)
  - CONVULSION [None]
  - MENINGITIS [None]
  - POSTICTAL STATE [None]
  - STATUS EPILEPTICUS [None]
